FAERS Safety Report 16078513 (Version 1)
Quarter: 2019Q1

REPORT INFORMATION
  Report Type: Spontaneous
  Country: US (occurrence: US)
  Receive Date: 20190315
  Receipt Date: 20190315
  Transmission Date: 20190418
  Serious: No
  Sender: FDA-Public Use
  Company Number: US-TEVA-2019-US-1012522

PATIENT
  Sex: Female

DRUGS (2)
  1. BRAND TRAMADOL [Concomitant]
  2. ELETRIPTAN HYDROBROMIDE. [Suspect]
     Active Substance: ELETRIPTAN HYDROBROMIDE
     Indication: MIGRAINE
     Dosage: 20 MILLIGRAM DAILY; TOOK ONCE, CAN TAKE AS NEEDED
     Route: 048
     Dates: start: 201709, end: 201709

REACTIONS (2)
  - Vomiting [Not Recovered/Not Resolved]
  - Pain [Recovered/Resolved]

NARRATIVE: CASE EVENT DATE: 201709
